FAERS Safety Report 23879619 (Version 1)
Quarter: 2024Q2

REPORT INFORMATION
  Report Type: Spontaneous
  Country: US (occurrence: US)
  Receive Date: 20240521
  Receipt Date: 20240521
  Transmission Date: 20240715
  Serious: No
  Sender: FDA-Public Use
  Company Number: US-HORIZON THERAPEUTICS-HZN-2024-002876

PATIENT

DRUGS (2)
  1. UPLIZNA [Suspect]
     Active Substance: INEBILIZUMAB-CDON
     Indication: Neuromyelitis optica spectrum disorder
     Dosage: 300 MG IV EVERY 6 MONTHS
     Route: 042
     Dates: start: 2018
  2. UPLIZNA [Suspect]
     Active Substance: INEBILIZUMAB-CDON
     Dosage: MOST RECENT INFUSION
     Route: 042
     Dates: start: 20240220

REACTIONS (1)
  - Neck pain [Recovered/Resolved]

NARRATIVE: CASE EVENT DATE: 20180101
